FAERS Safety Report 5878519-6 (Version None)
Quarter: 2008Q3

REPORT INFORMATION
  Report Type: 
  Country: None (occurrence: None)
  Receive Date: 20080911
  Receipt Date: 20080207
  Transmission Date: 20090109
  Serious: No
  Sender: FDA-Public Use
  Company Number: US-AMGEN-KDL264431

PATIENT
  Sex: Female

DRUGS (1)
  1. NEUPOGEN [Suspect]
     Indication: CHEMOTHERAPY
     Dates: start: 20071006, end: 20071009

REACTIONS (4)
  - DIZZINESS [None]
  - PARAESTHESIA ORAL [None]
  - PRESYNCOPE [None]
  - TONGUE DISORDER [None]
